FAERS Safety Report 8382759 (Version 3)
Quarter: 2013Q1

REPORT INFORMATION
  Report Type: Report from Study
  Country: JP (occurrence: JP)
  Receive Date: 20120201
  Receipt Date: 20130117
  Transmission Date: 20140127
  Serious: Yes (Hospitalization)
  Sender: FDA-Public Use
  Company Number: JP-ROCHE-1032562

PATIENT
  Age: 68 None
  Sex: Female
  Weight: 54.3 kg

DRUGS (8)
  1. PEG-INTERFERON ALFA 2A [Suspect]
     Indication: CHRONIC HEPATITIS C
     Route: 058
     Dates: start: 20111018, end: 20111128
  2. PEG-INTERFERON ALFA 2A [Suspect]
     Route: 058
     Dates: start: 20111205, end: 20111205
  3. RIBAVIRIN [Suspect]
     Indication: CHRONIC HEPATITIS C
     Route: 048
     Dates: start: 20111018, end: 20111127
  4. RIBAVIRIN [Suspect]
     Route: 048
     Dates: start: 20111128, end: 20111204
  5. BLINDED BI 201335 (HCV PROTEASE INHIBITOR) [Suspect]
     Indication: CHRONIC HEPATITIS C
     Route: 048
     Dates: start: 20111018, end: 20111211
  6. BLINDED BI 201335 (HCV PROTEASE INHIBITOR) [Suspect]
     Route: 048
     Dates: start: 20120105
  7. LOSARTAN [Concomitant]
  8. NU-LOTAN [Concomitant]
     Indication: PERICARDITIS CONSTRICTIVE
     Route: 048

REACTIONS (3)
  - Cardiac failure congestive [Recovered/Resolved]
  - Atrial fibrillation [Recovered/Resolved]
  - Anaemia [Recovered/Resolved]
